FAERS Safety Report 15338297 (Version 1)
Quarter: 2018Q3

REPORT INFORMATION
  Report Type: Spontaneous
  Country: US (occurrence: US)
  Receive Date: 20180831
  Receipt Date: 20180831
  Transmission Date: 20181010
  Serious: Yes (Hospitalization, Other)
  Sender: FDA-Public Use
  Company Number: US-BAYER-2018-159810

PATIENT
  Age: 71 Year
  Sex: Female

DRUGS (1)
  1. BETASERON [Suspect]
     Active Substance: INTERFERON BETA-1B
     Indication: MULTIPLE SCLEROSIS
     Dosage: 0.25 MG, UNK
     Route: 058

REACTIONS (5)
  - Depression [None]
  - Spinal operation [None]
  - Multiple sclerosis relapse [None]
  - Decreased interest [Not Recovered/Not Resolved]
  - Knee arthroplasty [None]

NARRATIVE: CASE EVENT DATE: 2007
